FAERS Safety Report 6109512-6 (Version None)
Quarter: 2009Q1

REPORT INFORMATION
  Report Type: 
  Country: None (occurrence: None)
  Receive Date: 20090310
  Receipt Date: 20090304
  Transmission Date: 20090719
  Serious: Yes (Other)
  Sender: FDA-Public Use
  Company Number: US-ELI_LILLY_AND_COMPANY-US200903001321

PATIENT
  Sex: Male

DRUGS (1)
  1. HUMALOG [Suspect]
     Dosage: UNK, UNK
     Dates: start: 20080101

REACTIONS (3)
  - BLOOD GLUCOSE DECREASED [None]
  - BLOOD GLUCOSE INCREASED [None]
  - DIALYSIS [None]
